FAERS Safety Report 14343698 (Version 16)
Quarter: 2021Q1

REPORT INFORMATION
  Report Type: Spontaneous
  Country: US (occurrence: US)
  Receive Date: 20180102
  Receipt Date: 20210218
  Transmission Date: 20210419
  Serious: Yes (Other)
  Sender: FDA-Public Use
  Company Number: US-PFIZER INC-2018000272

PATIENT
  Age: 65 Year
  Sex: Male

DRUGS (3)
  1. LYRICA [Suspect]
     Active Substance: PREGABALIN
     Indication: BACK PAIN
     Dosage: 300 MG, 2X/DAY (TWO CAPSULES TWICE DAILY, TWO IN THE MORNING
     Route: 048
  2. LYRICA [Suspect]
     Active Substance: PREGABALIN
     Indication: NEURALGIA
  3. CELEBREX [Concomitant]
     Active Substance: CELECOXIB
     Dosage: UNK

REACTIONS (11)
  - Suicidal ideation [Unknown]
  - Diabetes mellitus [Unknown]
  - Stress [Unknown]
  - Intentional product use issue [Unknown]
  - Vision blurred [Unknown]
  - Intentional product misuse [Unknown]
  - Product dose omission issue [Unknown]
  - Palpitations [Unknown]
  - Loss of consciousness [Unknown]
  - Dry mouth [Unknown]
  - Movement disorder [Unknown]

NARRATIVE: CASE EVENT DATE: 20171228
